FAERS Safety Report 8995983 (Version 1)
Quarter: 2013Q1

REPORT INFORMATION
  Report Type: Spontaneous
  Country: US (occurrence: US)
  Receive Date: 20130103
  Receipt Date: 20130103
  Transmission Date: 20140127
  Serious: No
  Sender: FDA-Public Use
  Company Number: US-ABBOTT-12P-163-1004987-00

PATIENT
  Sex: Male

DRUGS (1)
  1. SYNTHROID [Suspect]
     Dates: start: 2012

REACTIONS (4)
  - Lethargy [Not Recovered/Not Resolved]
  - Fatigue [Not Recovered/Not Resolved]
  - Hunger [Not Recovered/Not Resolved]
  - Drug ineffective [Unknown]
